FAERS Safety Report 10802541 (Version 1)
Quarter: 2015Q1

REPORT INFORMATION
  Report Type: Spontaneous
  Country: US (occurrence: US)
  Receive Date: 20150217
  Receipt Date: 20150217
  Transmission Date: 20150721
  Serious: No
  Sender: FDA-Public Use
  Company Number: US-AMARIN PHARMA, INC.-2014AMR000104

PATIENT
  Sex: Female

DRUGS (2)
  1. VASCEPA [Suspect]
     Active Substance: ETHYL ICOSAPENTATE
     Indication: PRODUCT USED FOR UNKNOWN INDICATION
     Route: 048
     Dates: start: 201306
  2. VASCEPA [Suspect]
     Active Substance: ETHYL ICOSAPENTATE
     Route: 048
     Dates: start: 20141208

REACTIONS (2)
  - Vomiting [Recovered/Resolved]
  - Product odour abnormal [Unknown]
